FAERS Safety Report 24983014 (Version 6)
Quarter: 2025Q2

REPORT INFORMATION
  Report Type: Spontaneous
  Country: US (occurrence: US)
  Receive Date: 20250218
  Receipt Date: 20250529
  Transmission Date: 20250717
  Serious: Yes (Other)
  Sender: AMGEN
  Company Number: US-AMGEN-USASP2025030883

PATIENT
  Age: 37 Year
  Sex: Female
  Weight: 87 kg

DRUGS (26)
  1. TEPEZZA [Suspect]
     Active Substance: TEPROTUMUMAB-TRBW
     Indication: Endocrine ophthalmopathy
     Route: 040
     Dates: start: 20221109
  2. TEPEZZA [Suspect]
     Active Substance: TEPROTUMUMAB-TRBW
     Indication: Graves^ disease
     Route: 040
     Dates: start: 20221207, end: 20221207
  3. TEMOVATE [Concomitant]
     Active Substance: CLOBETASOL PROPIONATE
     Indication: Alopecia scarring
     Route: 061
     Dates: start: 20220526, end: 20240715
  4. CLOBETASOL PROPIONATE [Concomitant]
     Active Substance: CLOBETASOL PROPIONATE
     Indication: Alopecia scarring
     Dosage: UNK, QD (APPLY TOPICALLY TO AFFECTED AREAS ON THE SCALP DAILY)
     Route: 061
     Dates: start: 20220525
  5. TRULICITY [Concomitant]
     Active Substance: DULAGLUTIDE
     Route: 058
  6. LEXAPRO [Concomitant]
     Active Substance: ESCITALOPRAM OXALATE
     Dosage: 20 MILLIGRAM, QD
     Route: 048
  7. NEURONTIN [Concomitant]
     Active Substance: GABAPENTIN
     Dosage: 100 MILLIGRAM, QD
     Route: 048
  8. NEURONTIN [Concomitant]
     Active Substance: GABAPENTIN
     Route: 048
     Dates: end: 20230803
  9. HYDROCORTISONE [Concomitant]
     Active Substance: HYDROCORTISONE
     Indication: Rash
     Dosage: UNK UNK, BID
     Route: 061
  10. VISTARIL [Concomitant]
     Active Substance: HYDROXYZINE PAMOATE
     Route: 048
  11. ELIDEL [Concomitant]
     Active Substance: PIMECROLIMUS
     Indication: Vitiligo
     Dosage: UNK, BID
     Route: 061
     Dates: start: 20220606, end: 20230602
  12. INDERAL [Concomitant]
     Active Substance: PROPRANOLOL HYDROCHLORIDE
     Dosage: UNK UNK, BID
     Route: 048
  13. OPZELURA [Concomitant]
     Active Substance: RUXOLITINIB PHOSPHATE
     Dosage: UNK UNK, QD
     Route: 061
  14. IMITREX [Concomitant]
     Active Substance: SUMATRIPTAN SUCCINATE
     Indication: Migraine
     Route: 048
  15. PROTOPIC [Concomitant]
     Active Substance: TACROLIMUS
     Indication: Vitiligo
     Dosage: UNK, BID
     Route: 061
     Dates: start: 20220525
  16. ZANAFLEX [Concomitant]
     Active Substance: TIZANIDINE HYDROCHLORIDE
     Route: 048
     Dates: start: 20220518, end: 20240305
  17. VITAMIN D2 [Concomitant]
     Active Substance: ERGOCALCIFEROL
     Indication: Vitamin D deficiency
     Dosage: 1.25 MILLIGRAM, QWK
     Route: 048
     Dates: start: 20221202, end: 20230518
  18. AUGMENTIN [Concomitant]
     Active Substance: AMOXICILLIN\CLAVULANATE POTASSIUM
     Dosage: UNK UNK, BID
     Route: 048
  19. GABAPENTIN [Concomitant]
     Active Substance: GABAPENTIN
     Route: 065
  20. ALDACTONE [Concomitant]
     Active Substance: SPIRONOLACTONE
     Indication: Alopecia
     Dosage: 50 MILLIGRAM, QD
     Route: 048
     Dates: start: 20220912, end: 20230314
  21. SODIUM CHLORIDE [Concomitant]
     Active Substance: SODIUM CHLORIDE
  22. SODIUM CHLORIDE [Concomitant]
     Active Substance: SODIUM CHLORIDE
  23. MEDROL [Concomitant]
     Active Substance: METHYLPREDNISOLONE
     Route: 048
     Dates: start: 20220518, end: 20230302
  24. ELOCON [Concomitant]
     Active Substance: MOMETASONE FUROATE
     Indication: Vitiligo
     Dosage: UNK UNK, QD
     Route: 061
     Dates: start: 20220712
  25. ELOCON [Concomitant]
     Active Substance: MOMETASONE FUROATE
     Indication: Pruritus
     Dosage: UNK UNK, BID
     Route: 061
     Dates: start: 20220912, end: 20230302
  26. Artificial tears [Concomitant]
     Indication: Photosensitivity reaction

REACTIONS (29)
  - Endocrine ophthalmopathy [Unknown]
  - Graves^ disease [Unknown]
  - Deafness permanent [Not Recovered/Not Resolved]
  - Conductive deafness [Unknown]
  - Emotional distress [Unknown]
  - Pain [Unknown]
  - Anxiety [Unknown]
  - Quality of life decreased [Unknown]
  - Discomfort [Unknown]
  - Tinnitus [Not Recovered/Not Resolved]
  - Product use complaint [Unknown]
  - Ear pain [Unknown]
  - Migraine [Unknown]
  - Antinuclear antibody positive [Unknown]
  - Diplopia [Unknown]
  - Vertigo [Unknown]
  - Central auditory processing disorder [Unknown]
  - Dizziness [Unknown]
  - Decreased appetite [Unknown]
  - Vomiting [Unknown]
  - Confusional state [Unknown]
  - Disturbance in attention [Unknown]
  - Stress [Unknown]
  - Insomnia [Unknown]
  - Irritability [Unknown]
  - Depression [Unknown]
  - Headache [Unknown]
  - Nausea [Unknown]
  - Fatigue [Unknown]

NARRATIVE: CASE EVENT DATE: 20220101
